FAERS Safety Report 6295971-5 (Version None)
Quarter: 2009Q3

REPORT INFORMATION
  Report Type: 
  Country: None (occurrence: None)
  Receive Date: 20090804
  Receipt Date: 20090728
  Transmission Date: 20100115
  Serious: Yes (Hospitalization)
  Sender: FDA-Public Use
  Company Number: CA-ASTRAZENECA-2009UW21342

PATIENT
  Sex: Male

DRUGS (7)
  1. CRESTOR [Suspect]
     Route: 048
     Dates: start: 20060101
  2. CRESTOR [Suspect]
     Route: 048
     Dates: start: 20050101
  3. PLAVIX [Concomitant]
  4. COVERSYL [Concomitant]
  5. EZETROL [Concomitant]
  6. PARIET [Concomitant]
  7. COLACE [Concomitant]

REACTIONS (8)
  - BLOOD GLUCOSE INCREASED [None]
  - BLOOD POTASSIUM INCREASED [None]
  - FATIGUE [None]
  - HYPERTENSION [None]
  - HYPOAESTHESIA [None]
  - PAIN IN EXTREMITY [None]
  - PULSE ABNORMAL [None]
  - STENT PLACEMENT [None]
